FAERS Safety Report 7128409-6 (Version None)
Quarter: 2010Q4

REPORT INFORMATION
  Report Type: 
  Country: None (occurrence: None)
  Receive Date: 20101130
  Receipt Date: 20101126
  Transmission Date: 20110411
  Serious: Yes (Death)
  Sender: FDA-Public Use
  Company Number: PHHY2010US80941

PATIENT
  Sex: Female

DRUGS (1)
  1. AFINITOR [Suspect]
     Indication: METASTASES TO KIDNEY
     Dosage: 5 MG, QD
     Route: 048
     Dates: start: 20100901

REACTIONS (1)
  - DEATH [None]
